FAERS Safety Report 26167036 (Version 1)
Quarter: 2025Q4

REPORT INFORMATION
  Report Type: Other
  Country: GB (occurrence: GB)
  Receive Date: 20251217
  Receipt Date: 20251217
  Transmission Date: 20260118
  Serious: Yes (Hospitalization, Other)
  Sender: ANI
  Company Number: GB-ANIPHARMA-035558

PATIENT
  Age: 86 Year
  Sex: Female

DRUGS (4)
  1. LEUCOVORIN [Suspect]
     Active Substance: LEUCOVORIN\LEUCOVORIN CALCIUM
     Indication: Adenocarcinoma gastric
     Dosage: FOLFOX CHEMOTHERAPY
  2. FLUOROURACIL [Concomitant]
     Active Substance: FLUOROURACIL
     Indication: Adenocarcinoma gastric
     Dosage: FOLFOX CHEMOTHERAPY
  3. OXALIPLATIN [Concomitant]
     Active Substance: OXALIPLATIN
     Indication: Adenocarcinoma gastric
     Dosage: FOLFOX CHEMOTHERAPY
  4. NIVOLUMAB [Concomitant]
     Active Substance: NIVOLUMAB
     Indication: Adenocarcinoma gastric

REACTIONS (1)
  - Cytokine release syndrome [Recovered/Resolved]
